FAERS Safety Report 22850599 (Version 3)
Quarter: 2023Q4

REPORT INFORMATION
  Report Type: Spontaneous
  Country: US (occurrence: US)
  Receive Date: 20230822
  Receipt Date: 20231108
  Transmission Date: 20240109
  Serious: No
  Sender: FDA-Public Use
  Company Number: US-PFIZER INC-202300277969

PATIENT
  Age: 7 Year
  Sex: Male
  Weight: 24.036 kg

DRUGS (2)
  1. GENOTROPIN [Suspect]
     Active Substance: SOMATROPIN
     Dosage: 1.1 MG, DAILY (EVERY DAY BUT SUNDAY)
     Route: 058
     Dates: start: 2022
  2. HEMLIBRA [Concomitant]
     Active Substance: EMICIZUMAB-KXWH
     Indication: Haemophilia
     Dosage: .66 MG (SUBQ EVERY 2 WEEKS)
     Route: 058
     Dates: start: 202204

REACTIONS (2)
  - Device malfunction [Not Recovered/Not Resolved]
  - Expired device used [Unknown]

NARRATIVE: CASE EVENT DATE: 20230815
